FAERS Safety Report 14584500 (Version 4)
Quarter: 2018Q4

REPORT INFORMATION
  Report Type: Report from Study
  Country: CA (occurrence: CA)
  Receive Date: 20180301
  Receipt Date: 20181030
  Transmission Date: 20190204
  Serious: Yes (Hospitalization, Other)
  Sender: FDA-Public Use
  Company Number: CA-ROCHE-2079555

PATIENT
  Age: 83 Year
  Sex: Female
  Weight: 65 kg

DRUGS (23)
  1. NIASPAN [Concomitant]
     Active Substance: NIACIN
     Indication: DYSLIPIDAEMIA
     Route: 048
     Dates: start: 2005
  2. ZANTAC [Concomitant]
     Active Substance: RANITIDINE HYDROCHLORIDE
     Indication: PRODUCT USED FOR UNKNOWN INDICATION
     Dosage: UNK
     Route: 065
  3. ASAPHEN [Concomitant]
     Active Substance: ASPIRIN
     Indication: PROPHYLAXIS
     Route: 065
     Dates: start: 2005
  4. D TABS [Concomitant]
     Indication: OSTEOARTHRITIS
     Route: 065
     Dates: start: 2015
  5. METOPROLOL. [Concomitant]
     Active Substance: METOPROLOL
     Dosage: 50 MG, BID
     Route: 048
     Dates: start: 20170924
  6. RALOXIFENE. [Concomitant]
     Active Substance: RALOXIFENE
     Indication: OSTEOPOROSIS
     Route: 065
     Dates: start: 2005
  7. ROSUVASTATIN. [Concomitant]
     Active Substance: ROSUVASTATIN
     Indication: HYPERLIPIDAEMIA
     Route: 065
     Dates: start: 2005
  8. FUROSEMIDE. [Concomitant]
     Active Substance: FUROSEMIDE
     Indication: HYPERTENSION
     Route: 048
     Dates: start: 20170104, end: 20170924
  9. CLONIDINE. [Concomitant]
     Active Substance: CLONIDINE
     Indication: HYPERTENSION
     Route: 065
     Dates: start: 2005
  10. METOPROLOL. [Concomitant]
     Active Substance: METOPROLOL
     Indication: HYPERTENSION
     Route: 048
     Dates: start: 20160820, end: 20170923
  11. OMEPRAZOLE. [Concomitant]
     Active Substance: OMEPRAZOLE
     Indication: GASTROOESOPHAGEAL REFLUX DISEASE
     Route: 065
     Dates: start: 2005
  12. ROSUVASTATIN. [Concomitant]
     Active Substance: ROSUVASTATIN
     Indication: HYPOTHYROIDISM
     Route: 065
     Dates: start: 1995
  13. RANIBIZUMAB. [Suspect]
     Active Substance: RANIBIZUMAB
     Indication: CHOROIDAL NEOVASCULARISATION
     Route: 031
     Dates: start: 20151005, end: 20151005
  14. COUMADIN [Concomitant]
     Active Substance: WARFARIN SODIUM
     Indication: CORONARY ARTERY DISEASE
     Route: 065
     Dates: start: 2016
  15. COUMADIN [Concomitant]
     Active Substance: WARFARIN SODIUM
     Dosage: 0.2 MG, UNK
     Route: 048
     Dates: start: 201708
  16. CITALOPRAM [Concomitant]
     Active Substance: CITALOPRAM HYDROBROMIDE
     Indication: DEPRESSION
     Route: 065
     Dates: start: 1975
  17. SYNTHROID [Concomitant]
     Active Substance: LEVOTHYROXINE SODIUM
     Indication: HYPOTHYROIDISM
     Route: 065
     Dates: start: 1995
  18. VALSARTAN. [Concomitant]
     Active Substance: VALSARTAN
     Indication: HYPERTENSION
     Route: 048
     Dates: start: 20160907, end: 20170924
  19. RANIBIZUMAB. [Suspect]
     Active Substance: RANIBIZUMAB
     Indication: AGE-RELATED MACULAR DEGENERATION
     Route: 031
     Dates: start: 20170921, end: 20170921
  20. AMLODIPINE [Concomitant]
     Active Substance: AMLODIPINE BESYLATE
     Indication: HYPERTENSION
     Route: 048
     Dates: start: 20160907, end: 20170924
  21. ACETAMINOPHEN. [Concomitant]
     Active Substance: ACETAMINOPHEN
     Indication: PRODUCT USED FOR UNKNOWN INDICATION
     Dosage: UNK
     Route: 065
  22. TYLENOL [Concomitant]
     Active Substance: ACETAMINOPHEN
     Indication: PRODUCT USED FOR UNKNOWN INDICATION
     Route: 065
  23. ROSUVASTATIN. [Concomitant]
     Active Substance: ROSUVASTATIN
     Indication: DYSLIPIDAEMIA
     Route: 065

REACTIONS (10)
  - Arrhythmia [Unknown]
  - Dyspnoea [Unknown]
  - Dry eye [Not Recovered/Not Resolved]
  - Dementia [Not Recovered/Not Resolved]
  - Acute pulmonary oedema [Recovered/Resolved]
  - Palpitations [Unknown]
  - Atrial fibrillation [Not Recovered/Not Resolved]
  - Acute myocardial infarction [Recovered/Resolved]
  - Pleural effusion [Recovered/Resolved]
  - Influenza [Recovered/Resolved]

NARRATIVE: CASE EVENT DATE: 20151128
